FAERS Safety Report 9449871 (Version 2)
Quarter: 2013Q3

REPORT INFORMATION
  Report Type: Report from Study
  Country: CA (occurrence: CA)
  Receive Date: 20130809
  Receipt Date: 20130813
  Transmission Date: 20140515
  Serious: Yes (Death)
  Sender: FDA-Public Use
  Company Number: PHHY2013CA085554

PATIENT
  Age: 50 Year
  Sex: Male

DRUGS (4)
  1. CLOZARIL (CLOZAPINE) [Suspect]
     Indication: DELUSIONAL DISORDER, UNSPECIFIED TYPE
     Dosage: 100 MG, UNK
     Route: 048
     Dates: start: 20110803
  2. VITAMIN B1 [Concomitant]
     Dosage: UNK
  3. OLANZAPINE [Concomitant]
     Dosage: UNK
  4. COVERSYL [Concomitant]
     Dosage: UNK

REACTIONS (1)
  - Death [Fatal]
